FAERS Safety Report 8157977-0 (Version None)
Quarter: 2012Q1

REPORT INFORMATION
  Report Type: 
  Country: None (occurrence: None)
  Receive Date: 20120222
  Receipt Date: 20120209
  Transmission Date: 20120608
  Serious: Yes (Other)
  Sender: FDA-Public Use
  Company Number: PHHY2012BR003094

PATIENT
  Age: 6 Year
  Sex: Male

DRUGS (6)
  1. DIPHENHYDRA. HCL W/PARACETAMOL/PSEUDOEPH. HCL [Suspect]
     Indication: RHINITIS
  2. RISPERIDONE [Suspect]
     Dosage: UNK UKN, UNK
  3. DIPHENHYDRA. HCL W/PARACETAMOL/PSEUDOEPH. HCL [Suspect]
     Indication: NASOPHARYNGITIS
     Dosage: UNK UKN, UNK
  4. TEGRETOL [Suspect]
     Indication: PSYCHOMOTOR HYPERACTIVITY
     Dosage: 10 ML, BID
     Route: 048
  5. CARBAMAZEPINE [Suspect]
  6. NEULEPTIL [Suspect]
     Dosage: UNK UKN, UNK
     Dates: start: 20120101

REACTIONS (5)
  - CONVULSION [None]
  - RHINORRHOEA [None]
  - AGITATION [None]
  - RHINITIS [None]
  - NASOPHARYNGITIS [None]
